FAERS Safety Report 10194843 (Version 1)
Quarter: 2014Q2

REPORT INFORMATION
  Report Type: Spontaneous
  Country: US (occurrence: US)
  Receive Date: 20140526
  Receipt Date: 20140526
  Transmission Date: 20141212
  Serious: No
  Sender: FDA-Public Use
  Company Number: US-ASTRAZENECA-2014SE33450

PATIENT
  Age: 74 Year
  Sex: Male
  Weight: 77.1 kg

DRUGS (12)
  1. NEXIUM [Suspect]
     Indication: PEPTIC ULCER
     Route: 048
     Dates: start: 20140501, end: 20140508
  2. PROPAFENONE [Concomitant]
     Indication: CARDIAC DISORDER
     Route: 048
  3. POSTASSIUM CHLORIDE [Concomitant]
     Indication: ELECTROLYTE SUBSTITUTION THERAPY
     Route: 048
  4. ATIVAN [Concomitant]
     Indication: NERVOUS SYSTEM DISORDER
     Route: 048
  5. FLOMAX [Concomitant]
     Indication: PROSTATIC DISORDER
     Dosage: 0.4 MG 2 CAPSULES DAILY
     Route: 048
  6. ZINC [Concomitant]
     Indication: SUPPLEMENTATION THERAPY
     Route: 048
  7. MAGNESIUM [Concomitant]
     Indication: SUPPLEMENTATION THERAPY
     Route: 048
  8. FISH OIL [Concomitant]
     Indication: SUPPLEMENTATION THERAPY
     Route: 048
  9. VITAMIN C [Concomitant]
     Indication: SUPPLEMENTATION THERAPY
     Route: 048
  10. ALFALFA [Concomitant]
     Indication: SUPPLEMENTATION THERAPY
     Dosage: 340 MG 2 TABLETS DAILY
     Route: 048
  11. MELATONIN [Concomitant]
     Indication: SLEEP DISORDER
     Route: 048
  12. PROSCAR [Concomitant]
     Indication: PROSTATIC DISORDER
     Route: 048

REACTIONS (3)
  - Headache [Unknown]
  - Diarrhoea [Unknown]
  - Intentional product misuse [Unknown]
